FAERS Safety Report 16730503 (Version 1)
Quarter: 2019Q3

REPORT INFORMATION
  Report Type: Spontaneous
  Country: US (occurrence: US)
  Receive Date: 20190822
  Receipt Date: 20190822
  Transmission Date: 20191005
  Serious: No
  Sender: FDA-Public Use
  Company Number: US-ROMARKLABS-2019-US-000013

PATIENT
  Age: 61 Year
  Sex: Female

DRUGS (3)
  1. DOXYCYCLINE. [Concomitant]
     Active Substance: DOXYCYCLINE
     Indication: HELICOBACTER INFECTION
     Route: 048
  2. ALINIA [Suspect]
     Active Substance: NITAZOXANIDE
     Indication: HELICOBACTER INFECTION
     Dosage: 1 TABLET EVERY 12 HOURS
     Route: 048
     Dates: start: 201901
  3. LEVOFLOXACIN. [Concomitant]
     Active Substance: LEVOFLOXACIN
     Indication: HELICOBACTER INFECTION
     Route: 048

REACTIONS (1)
  - Constipation [Unknown]

NARRATIVE: CASE EVENT DATE: 201901
